FAERS Safety Report 23784822 (Version 1)
Quarter: 2024Q2

REPORT INFORMATION
  Report Type: Spontaneous
  Country: DE (occurrence: DE)
  Receive Date: 20240425
  Receipt Date: 20240425
  Transmission Date: 20240716
  Serious: Yes (Death)
  Sender: FDA-Public Use
  Company Number: DE-PFIZER INC-PV202400053962

PATIENT
  Sex: Male

DRUGS (2)
  1. TAFAMIDIS [Suspect]
     Active Substance: TAFAMIDIS
     Indication: Cardiac amyloidosis
     Dosage: UNK
  2. TAFAMIDIS [Suspect]
     Active Substance: TAFAMIDIS
     Indication: Cardiac failure

REACTIONS (2)
  - Cardiac amyloidosis [Fatal]
  - Disease progression [Fatal]
